FAERS Safety Report 15215093 (Version 1)
Quarter: 2018Q3

REPORT INFORMATION
  Report Type: Spontaneous
  Country: US (occurrence: US)
  Receive Date: 20180703
  Receipt Date: 20180703
  Transmission Date: 20181010
  Serious: Yes (Hospitalization)
  Sender: FDA-Public Use
  Company Number: None

PATIENT
  Age: 44 Year
  Sex: Female
  Weight: 90.9 kg

DRUGS (4)
  1. ELOXATIN [Suspect]
     Active Substance: OXALIPLATIN
     Dates: end: 20180417
  2. 5?FLUOROURACIL (5?FU) [Suspect]
     Active Substance: FLUOROURACIL
     Dates: end: 20180417
  3. LEUCOVORIN CALCIUM. [Suspect]
     Active Substance: LEUCOVORIN CALCIUM
     Dates: end: 20180417
  4. XELODA [Suspect]
     Active Substance: CAPECITABINE
     Dates: end: 20180601

REACTIONS (1)
  - Haematochezia [None]

NARRATIVE: CASE EVENT DATE: 20180601
